FAERS Safety Report 25366243 (Version 1)
Quarter: 2025Q2

REPORT INFORMATION
  Report Type: Spontaneous
  Country: CN (occurrence: CN)
  Receive Date: 20250528
  Receipt Date: 20250528
  Transmission Date: 20250717
  Serious: Yes (Death, Hospitalization, Other)
  Sender: PHARMAXIS EUROPE LIMITED
  Company Number: CN-Pharmaxis-001243

PATIENT
  Age: 69 Year
  Sex: Male
  Weight: 63 kg

DRUGS (1)
  1. MANNITOL [Suspect]
     Active Substance: MANNITOL
     Indication: Product used for unknown indication
     Route: 042

REACTIONS (5)
  - Hyperkalaemia [Fatal]
  - Blood pressure decreased [Fatal]
  - Heart rate decreased [Fatal]
  - Ventricular fibrillation [Fatal]
  - Cardiac arrest [Fatal]
